FAERS Safety Report 19808172 (Version 1)
Quarter: 2021Q3

REPORT INFORMATION
  Report Type: Spontaneous
  Country: US (occurrence: US)
  Receive Date: 20210908
  Receipt Date: 20210908
  Transmission Date: 20211014
  Serious: Yes (Death)
  Sender: FDA-Public Use
  Company Number: None

PATIENT
  Age: 83 Year
  Sex: Male

DRUGS (4)
  1. MUPIROCIN. [Concomitant]
     Active Substance: MUPIROCIN
  2. CEPHALEXIN. [Concomitant]
     Active Substance: CEPHALEXIN
  3. IPRATROPIUM [Concomitant]
     Active Substance: IPRATROPIUM
  4. GLATIRAMER [Suspect]
     Active Substance: GLATIRAMER
     Indication: MULTIPLE SCLEROSIS
     Dosage: ?          OTHER FREQUENCY:ON MON, WED, + FRI;?
     Route: 058
     Dates: start: 20190118

REACTIONS (1)
  - Death [None]
